FAERS Safety Report 9219860 (Version 1)
Quarter: 2013Q2

REPORT INFORMATION
  Report Type: Spontaneous
  Country: GB (occurrence: GB)
  Receive Date: 20130409
  Receipt Date: 20130409
  Transmission Date: 20140414
  Serious: Yes (Disabling, Other)
  Sender: FDA-Public Use
  Company Number: GB-JNJFOC-20130400899

PATIENT
  Age: 35 Year
  Sex: Female
  Weight: 61.68 kg

DRUGS (3)
  1. CILEST [Suspect]
     Indication: CONTRACEPTION
     Route: 048
     Dates: start: 20100608, end: 201209
  2. CERAZETTE [Suspect]
     Indication: PRODUCT USED FOR UNKNOWN INDICATION
     Route: 065
  3. SERETIDE [Concomitant]
     Indication: ASTHMA
     Route: 055

REACTIONS (5)
  - Asthma [Recovered/Resolved with Sequelae]
  - Food intolerance [Recovering/Resolving]
  - Depression [Unknown]
  - Acne cystic [Recovering/Resolving]
  - Irritability [Unknown]
